FAERS Safety Report 4288202-9 (Version None)
Quarter: 2004Q1

REPORT INFORMATION
  Report Type: 
  Country: None (occurrence: None)
  Receive Date: 20040209
  Receipt Date: 20030904
  Transmission Date: 20041129
  Serious: No
  Sender: FDA-Public Use
  Company Number: US-GLAXOSMITHKLINE-A0424737A

PATIENT
  Age: 67 Year
  Sex: Female

DRUGS (4)
  1. PAXIL [Suspect]
     Indication: MAJOR DEPRESSION
     Dosage: 40MG PER DAY
     Route: 048
     Dates: end: 20030828
  2. KLONOPIN [Concomitant]
  3. SYNTHROID [Concomitant]
  4. PREVACID [Concomitant]

REACTIONS (4)
  - DEPRESSION [None]
  - DRUG WITHDRAWAL SYNDROME [None]
  - PANIC ATTACK [None]
  - PARAESTHESIA [None]
